FAERS Safety Report 5909528-6 (Version None)
Quarter: 2008Q4

REPORT INFORMATION
  Report Type: 
  Country: None (occurrence: None)
  Receive Date: 20081006
  Receipt Date: 20080806
  Transmission Date: 20090506
  Serious: Yes (Hospitalization)
  Sender: FDA-Public Use
  Company Number: CL-MERCK-0808CHL00001M

PATIENT
  Age: 39 Year
  Sex: Female

DRUGS (2)
  1. COZAAR [Suspect]
     Indication: ESSENTIAL HYPERTENSION
     Route: 048
  2. ACENOCOUMAROL [Concomitant]
     Indication: PULMONARY EMBOLISM
     Route: 065

REACTIONS (3)
  - AMNIOTIC FLUID VOLUME [None]
  - DRUG EXPOSURE DURING PREGNANCY [None]
  - OLIGOHYDRAMNIOS [None]
